FAERS Safety Report 5787149-6 (Version None)
Quarter: 2008Q2

REPORT INFORMATION
  Report Type: 
  Country: None (occurrence: None)
  Receive Date: 20080623
  Receipt Date: 20080623
  Transmission Date: 20081010
  Serious: No
  Sender: FDA-Public Use
  Company Number: None

PATIENT
  Age: 42 Year
  Sex: Female
  Weight: 61.2356 kg

DRUGS (1)
  1. COPAXONE [Suspect]
     Indication: RELAPSING-REMITTING MULTIPLE SCLEROSIS
     Dosage: 1 ML 1 PER DAY SQ
     Route: 058
     Dates: start: 20031215, end: 20080621

REACTIONS (2)
  - LIPOATROPHY [None]
  - TREATMENT NONCOMPLIANCE [None]
